FAERS Safety Report 9069673 (Version 1)
Quarter: 2013Q1

REPORT INFORMATION
  Report Type: Report from Study
  Country: US (occurrence: US)
  Receive Date: 20130131
  Receipt Date: 20130131
  Transmission Date: 20140127
  Serious: Yes (Other)
  Sender: FDA-Public Use
  Company Number: US-ABBOTT-12P-163-0994664-00

PATIENT
  Age: 57 None
  Sex: Female
  Weight: 40.86 kg

DRUGS (6)
  1. HUMIRA [Suspect]
     Indication: RHEUMATOID ARTHRITIS
     Dates: start: 201107
  2. HUMIRA [Suspect]
     Indication: RHEUMATOID ARTHRITIS
     Dates: start: 201110
  3. METHOTREXATE [Concomitant]
     Indication: RHEUMATOID ARTHRITIS
     Dosage: 2.5 MG X 6 TABS WEEKLY
  4. ALBUTEROL [Concomitant]
     Indication: ASTHMA
  5. PREDNISONE [Concomitant]
     Route: 050
  6. PREDNISONE [Concomitant]
     Route: 050

REACTIONS (8)
  - Upper limb fracture [Recovered/Resolved]
  - Fall [Recovered/Resolved]
  - Injection site pain [Unknown]
  - Injection site extravasation [Unknown]
  - Arthralgia [Unknown]
  - Injection site extravasation [Unknown]
  - Incorrect dose administered [Unknown]
  - Incorrect dose administered [Unknown]
